FAERS Safety Report 24618315 (Version 1)
Quarter: 2024Q4

REPORT INFORMATION
  Report Type: Spontaneous
  Country: US (occurrence: US)
  Receive Date: 20241114
  Receipt Date: 20241114
  Transmission Date: 20250114
  Serious: No
  Sender: PL DEVELOPMENTS
  Company Number: US-P+L Developments of Newyork Corporation-2165027

PATIENT
  Sex: Male

DRUGS (1)
  1. NICOTINE POLACRILEX MINT [Suspect]
     Active Substance: NICOTINE
     Indication: Smoking cessation therapy

REACTIONS (2)
  - Product taste abnormal [Unknown]
  - Dyspepsia [Recovered/Resolved]
